FAERS Safety Report 10217117 (Version 1)
Quarter: 2014Q2

REPORT INFORMATION
  Report Type: Spontaneous
  Country: US (occurrence: US)
  Receive Date: 20140604
  Receipt Date: 20140604
  Transmission Date: 20141212
  Serious: No
  Sender: FDA-Public Use
  Company Number: US-BAYER-2014-073626

PATIENT
  Age: 34 Year
  Sex: Male

DRUGS (3)
  1. LEVITRA [Suspect]
     Indication: ERECTILE DYSFUNCTION
     Dosage: 2-3 TIMES PER WEEK AS NEEDED
     Route: 048
     Dates: start: 2011
  2. LEVITRA [Suspect]
     Indication: ERECTILE DYSFUNCTION
     Dosage: 2-3 TIMES PER WEEK AS NEEDED
     Route: 048
     Dates: start: 2011
  3. JANUMET [Concomitant]
     Dosage: UNK UNK, BID

REACTIONS (5)
  - Blood testosterone abnormal [None]
  - Blood glucose decreased [None]
  - Drug ineffective [None]
  - Wrong technique in drug usage process [None]
  - Drug ineffective [None]
